FAERS Safety Report 24301251 (Version 2)
Quarter: 2024Q4

REPORT INFORMATION
  Report Type: Spontaneous
  Country: US (occurrence: US)
  Receive Date: 20240910
  Receipt Date: 20241015
  Transmission Date: 20250115
  Serious: No
  Sender: LUPIN
  Company Number: US-LUPIN PHARMACEUTICALS INC.-2024-08592

PATIENT

DRUGS (2)
  1. AMLODIPINE BESYLATE [Suspect]
     Active Substance: AMLODIPINE BESYLATE
     Indication: Product used for unknown indication
     Dosage: UNK
     Route: 065
     Dates: start: 20240818
  2. AMLODIPINE BESYLATE [Suspect]
     Active Substance: AMLODIPINE BESYLATE
     Dosage: UNK, SHE WAS TAKING AMLODIPINE BESYLATE TABLET 5 MG FOR THE PAST 2 YEARS
     Route: 065

REACTIONS (2)
  - Product quality issue [Unknown]
  - Palpitations [Unknown]

NARRATIVE: CASE EVENT DATE: 20240819
